FAERS Safety Report 7286435-0 (Version None)
Quarter: 2011Q1

REPORT INFORMATION
  Report Type: 
  Country: None (occurrence: None)
  Receive Date: 20110127
  Receipt Date: 20110113
  Transmission Date: 20110831
  Serious: Yes (Death)
  Sender: FDA-Public Use
  Company Number: DSA_44711_2011

PATIENT
  Age: 46 Year
  Sex: Female

DRUGS (1)
  1. DILTIAZEM [Suspect]
     Dosage: (7200 MG 1X, OVERDOSE AMOUNT ORAL)
     Route: 048

REACTIONS (8)
  - BLOOD PRESSURE DECREASED [None]
  - UNRESPONSIVE TO STIMULI [None]
  - HEART RATE DECREASED [None]
  - ATRIOVENTRICULAR BLOCK COMPLETE [None]
  - POISONING [None]
  - SELF-MEDICATION [None]
  - COMPLETED SUICIDE [None]
  - INCORRECT DOSE ADMINISTERED [None]
